FAERS Safety Report 15705732 (Version 1)
Quarter: 2018Q4

REPORT INFORMATION
  Report Type: Other
  Country: CN (occurrence: CN)
  Receive Date: 20181210
  Receipt Date: 20181210
  Transmission Date: 20190205
  Serious: Yes (Other)
  Sender: FDA-Public Use
  Company Number: CN-ARALEZ PHARMACEUTICALS R+D INC.-2018-ARA-003151

PATIENT
  Age: 39 Year
  Sex: Male

DRUGS (4)
  1. TRADITIONAL MEDICINE [Suspect]
     Active Substance: HERBALS\HOMEOPATHICS
     Indication: HYPERTENSION
  2. METOPROLOL SUCCINATE. [Suspect]
     Active Substance: METOPROLOL SUCCINATE
     Indication: LUNG INFECTION
     Dosage: 23.75 MG DAILY
     Route: 048
     Dates: start: 20181005, end: 20181015
  3. TRADITIONAL MEDICINE [Suspect]
     Active Substance: HERBALS\HOMEOPATHICS
     Indication: LUNG INFECTION
     Dosage: 10 ML TID
     Route: 048
     Dates: start: 20181005, end: 20181009
  4. METOPROLOL SUCCINATE. [Suspect]
     Active Substance: METOPROLOL SUCCINATE
     Indication: HYPERTENSION

REACTIONS (1)
  - Dermatitis exfoliative [Recovering/Resolving]

NARRATIVE: CASE EVENT DATE: 20181007
